FAERS Safety Report 8852606 (Version 3)
Quarter: 2013Q1

REPORT INFORMATION
  Report Type: Spontaneous
  Country: CA (occurrence: CA)
  Receive Date: 20121022
  Receipt Date: 20130222
  Transmission Date: 20140127
  Serious: Yes (Hospitalization, Other)
  Sender: FDA-Public Use
  Company Number: CA-ELI_LILLY_AND_COMPANY-CA201210003963

PATIENT
  Age: 63 Year
  Sex: Male

DRUGS (13)
  1. FORTEO [Suspect]
     Indication: OSTEOPOROSIS
     Dosage: 20 UG, QD
     Route: 058
     Dates: start: 20120217, end: 20121010
  2. FORTEO [Suspect]
     Dosage: 20 UG, UNK
     Route: 058
  3. PRAVASTATIN [Concomitant]
  4. CALCIUM [Concomitant]
  5. RIVASA [Concomitant]
  6. VERAPAMIL [Concomitant]
  7. VALSARTAN [Concomitant]
  8. RANITIDINE [Concomitant]
  9. PREDNISONE [Concomitant]
  10. EURO FOLIC [Concomitant]
  11. METHOTREXATE [Concomitant]
  12. OMEPRAZOL [Concomitant]
  13. SIMPONI [Concomitant]

REACTIONS (3)
  - Aortic arteriosclerosis [Unknown]
  - Pulmonary embolism [Not Recovered/Not Resolved]
  - Pulmonary oedema [Not Recovered/Not Resolved]
